FAERS Safety Report 5648202-0 (Version None)
Quarter: 2008Q1

REPORT INFORMATION
  Report Type: 
  Country: None (occurrence: None)
  Receive Date: 20080131
  Receipt Date: 20071124
  Transmission Date: 20080703
  Serious: No
  Sender: FDA-Public Use
  Company Number: US200708003933

PATIENT
  Age: 76 Year
  Sex: Female
  Weight: 71.7 kg

DRUGS (6)
  1. BYETTA [Suspect]
     Indication: TYPE 2 DIABETES MELLITUS
     Dosage: 5 UG, 2/D, SUBCUTANEOUS ; 5 UG EACH MORNING, SUBCUTANEOUS ; 10 UG, 2/D, SUBCUTANEOUS
     Route: 058
     Dates: start: 20070815, end: 20070101
  2. BYETTA [Suspect]
     Indication: TYPE 2 DIABETES MELLITUS
     Dosage: 5 UG, 2/D, SUBCUTANEOUS ; 5 UG EACH MORNING, SUBCUTANEOUS ; 10 UG, 2/D, SUBCUTANEOUS
     Route: 058
     Dates: start: 20070813, end: 20070815
  3. BYETTA [Suspect]
     Indication: TYPE 2 DIABETES MELLITUS
     Dosage: 5 UG, 2/D, SUBCUTANEOUS ; 5 UG EACH MORNING, SUBCUTANEOUS ; 10 UG, 2/D, SUBCUTANEOUS
     Route: 058
     Dates: start: 20070101
  4. METFORMIN HCL [Concomitant]
  5. AMARYL [Concomitant]
  6. ACTOS [Concomitant]

REACTIONS (4)
  - DECREASED APPETITE [None]
  - FOOD CRAVING [None]
  - NAUSEA [None]
  - WEIGHT DECREASED [None]
